FAERS Safety Report 7509879-8 (Version None)
Quarter: 2011Q2

REPORT INFORMATION
  Report Type: 
  Country: None (occurrence: None)
  Receive Date: 20110527
  Receipt Date: 20110513
  Transmission Date: 20111010
  Serious: Yes (Other)
  Sender: FDA-Public Use
  Company Number: US-AMGEN-USASP2011025107

PATIENT
  Age: 12 Year
  Sex: Male

DRUGS (1)
  1. SENSIPAR [Suspect]
     Indication: BLOOD PARATHYROID HORMONE INCREASED
     Dosage: 60 MG, QD
     Dates: start: 20101001, end: 20110512

REACTIONS (3)
  - FALL [None]
  - IMPAIRED HEALING [None]
  - HIP FRACTURE [None]
